FAERS Safety Report 16817826 (Version 2)
Quarter: 2019Q3

REPORT INFORMATION
  Report Type: Spontaneous
  Country: US (occurrence: US)
  Receive Date: 20190917
  Receipt Date: 20190917
  Transmission Date: 20191005
  Serious: Yes (Hospitalization)
  Sender: FDA-Public Use
  Company Number: US-CELGENEUS-USA-20190903554

PATIENT
  Age: 85 Year
  Sex: Female
  Weight: 82.63 kg

DRUGS (2)
  1. POMALYST [Suspect]
     Active Substance: POMALIDOMIDE
     Dosage: 2 MILLIGRAM
     Route: 048
     Dates: start: 201908, end: 20190904
  2. POMALYST [Suspect]
     Active Substance: POMALIDOMIDE
     Indication: PLASMA CELL MYELOMA
     Dosage: 3 MILLIGRAM
     Route: 048
     Dates: start: 20190313

REACTIONS (3)
  - Mass [Unknown]
  - Urinary tract infection [Unknown]
  - Sepsis [Unknown]

NARRATIVE: CASE EVENT DATE: 20190904
